FAERS Safety Report 19257929 (Version 6)
Quarter: 2021Q3

REPORT INFORMATION
  Report Type: Report from Study
  Country: CA (occurrence: CA)
  Receive Date: 20210514
  Receipt Date: 20210915
  Transmission Date: 20211014
  Serious: Yes (Death, Hospitalization)
  Sender: FDA-Public Use
  Company Number: CA-EISAI MEDICAL RESEARCH-EC-2021-092646

PATIENT
  Age: 72 Year
  Sex: Female
  Weight: 73.3 kg

DRUGS (14)
  1. SULCRATE [Concomitant]
     Active Substance: SUCRALFATE
     Dates: start: 20201230
  2. LENVATINIB [Suspect]
     Active Substance: LENVATINIB
     Indication: ENDOMETRIAL CANCER
     Dosage: STARTING DOSE AT 20 MG, FLUCTUATED DOSAGE
     Route: 048
     Dates: start: 20200729, end: 20210504
  3. AMIODARONE [Concomitant]
     Active Substance: AMIODARONE
     Dates: start: 202001
  4. PERINDOPRIL [Concomitant]
     Active Substance: PERINDOPRIL
     Dates: start: 20200730
  5. PEMBROLIZUMAB. [Suspect]
     Active Substance: PEMBROLIZUMAB
     Indication: ENDOMETRIAL CANCER
     Route: 041
     Dates: start: 20200729, end: 20210323
  6. APIXABAN [Concomitant]
     Active Substance: APIXABAN
     Dates: start: 202001
  7. LENVATINIB [Suspect]
     Active Substance: LENVATINIB
     Route: 048
     Dates: start: 20210505, end: 20210505
  8. SENOKOT [Concomitant]
     Active Substance: SENNOSIDES
     Dates: start: 20201115, end: 20210703
  9. LEVOTHYROXINE SODIUM. [Concomitant]
     Active Substance: LEVOTHYROXINE SODIUM
     Dates: start: 20210120, end: 20210703
  10. PEMBROLIZUMAB. [Suspect]
     Active Substance: PEMBROLIZUMAB
     Route: 041
     Dates: start: 20210413, end: 20210413
  11. BISOPROLOL [Concomitant]
     Active Substance: BISOPROLOL
     Dates: start: 202001
  12. AMLODIPINE [Concomitant]
     Active Substance: AMLODIPINE BESYLATE
     Dates: start: 20200904, end: 20210703
  13. PANTOPRAZOLE [Concomitant]
     Active Substance: PANTOPRAZOLE
     Dates: start: 201001
  14. IMODIUM [Concomitant]
     Active Substance: LOPERAMIDE HYDROCHLORIDE
     Dates: start: 20201101, end: 20210703

REACTIONS (1)
  - Colitis [Not Recovered/Not Resolved]

NARRATIVE: CASE EVENT DATE: 20210505
